FAERS Safety Report 8614179-9 (Version None)
Quarter: 2012Q3

REPORT INFORMATION
  Report Type: 
  Country: None (occurrence: None)
  Receive Date: 20120813
  Receipt Date: 20120813
  Transmission Date: 20120928
  Serious: No
  Sender: FDA-Public Use
  Company Number: None

PATIENT
  Age: 52 Year
  Sex: Female
  Weight: 79.3795 kg

DRUGS (2)
  1. VENLAFAXINE HCL [Suspect]
     Indication: DEPRESSION
     Dosage: 225MG ONCE DAILY PO
     Route: 048
     Dates: start: 20120610, end: 20120620
  2. VENLAFAXINE HCL [Suspect]
     Indication: DEPRESSION
     Dosage: 225MG ONCE DAILY PO
     Route: 048
     Dates: start: 20111015, end: 20111220

REACTIONS (4)
  - CONDITION AGGRAVATED [None]
  - DRUG EFFECT DECREASED [None]
  - PRODUCT SUBSTITUTION ISSUE [None]
  - DEPRESSION [None]
